FAERS Safety Report 9141634 (Version 2)
Quarter: 2013Q2

REPORT INFORMATION
  Report Type: Spontaneous
  Country: US (occurrence: US)
  Receive Date: 20130305
  Receipt Date: 20130404
  Transmission Date: 20140414
  Serious: No
  Sender: FDA-Public Use
  Company Number: US-AMGEN-USASP2013008594

PATIENT
  Age: 37 Year
  Sex: Female
  Weight: 64.85 kg

DRUGS (5)
  1. ENBREL [Suspect]
     Indication: PSORIASIS
     Dosage: 25 MG, 2 TIMES/WK
     Route: 058
     Dates: start: 201202, end: 201301
  2. BENTYL [Concomitant]
     Dosage: 1 MG, TID
     Route: 048
  3. CHOLESTYRAMINE [Concomitant]
     Dosage: 1 UNK, TID
     Route: 048
  4. CLODERM                            /00212501/ [Concomitant]
     Indication: PSORIASIS
     Dosage: 0.1 %, UNK
     Route: 061
  5. VECTICAL [Concomitant]
     Indication: PSORIASIS
     Dosage: 3 MUG, BID
     Route: 061

REACTIONS (3)
  - Hot flush [Unknown]
  - Fatigue [Unknown]
  - Malaise [Unknown]
